FAERS Safety Report 5504209-5 (Version None)
Quarter: 2007Q4

REPORT INFORMATION
  Report Type: 
  Country: None (occurrence: None)
  Receive Date: 20071101
  Receipt Date: 20071026
  Transmission Date: 20080405
  Serious: Yes (Hospitalization)
  Sender: FDA-Public Use
  Company Number: B0493586A

PATIENT
  Sex: Female
  Weight: 80 kg

DRUGS (4)
  1. AUGMENTIN '125' [Suspect]
     Dosage: 1750MG PER DAY
     Route: 048
     Dates: start: 20070903, end: 20070906
  2. CLARITIN [Concomitant]
     Indication: DRUG USE FOR UNKNOWN INDICATION
     Dosage: 30MG PER DAY
     Route: 048
     Dates: start: 20070903, end: 20070914
  3. SINUPRET [Concomitant]
     Indication: DRUG USE FOR UNKNOWN INDICATION
     Route: 048
     Dates: start: 20070903, end: 20070906
  4. CALCIUM GLUCONATE [Concomitant]
     Indication: DRUG USE FOR UNKNOWN INDICATION
     Dosage: 10ML PER DAY
     Route: 042
     Dates: start: 20070903, end: 20070914

REACTIONS (6)
  - NAUSEA [None]
  - PRURITUS [None]
  - PYREXIA [None]
  - RASH GENERALISED [None]
  - TOXIC SKIN ERUPTION [None]
  - URTICARIA [None]
